FAERS Safety Report 6330288-1 (Version None)
Quarter: 2009Q3

REPORT INFORMATION
  Report Type: 
  Country: None (occurrence: None)
  Receive Date: 20090827
  Receipt Date: 20090720
  Transmission Date: 20100115
  Serious: No
  Sender: FDA-Public Use
  Company Number: US-KINGPHARMUSA00001-K200900858

PATIENT
  Sex: Female
  Weight: 68.027 kg

DRUGS (6)
  1. FLECTOR [Suspect]
     Indication: BACK PAIN
     Dosage: UNK PATCH
     Route: 061
     Dates: start: 20090101, end: 20090101
  2. FLECTOR [Suspect]
     Dosage: UNK PATCH, UNK
     Route: 061
     Dates: start: 20090501, end: 20090713
  3. FENTANYL [Concomitant]
     Indication: PAIN
     Dosage: 50 MG, UNK
  4. OXYCODONE [Concomitant]
     Indication: BREAKTHROUGH PAIN
     Dosage: 15 MG, UNK
     Route: 048
  5. LORAZEPAM [Concomitant]
     Indication: ANXIETY
     Dosage: 1 MG, UNK
     Route: 048
  6. LYRICA [Concomitant]
     Indication: NEURALGIA
     Dosage: 100 MG, BID
     Route: 048

REACTIONS (3)
  - INFLUENZA LIKE ILLNESS [None]
  - MUSCULOSKELETAL DISCOMFORT [None]
  - SKIN REACTION [None]
